FAERS Safety Report 5057548-9 (Version None)
Quarter: 2006Q3

REPORT INFORMATION
  Report Type: 
  Country: None (occurrence: None)
  Receive Date: 20060721
  Receipt Date: 20051115
  Transmission Date: 20061208
  Serious: No
  Sender: FDA-Public Use
  Company Number: US-GLAXOSMITHKLINE-A0582396A

PATIENT
  Age: 75 Year
  Sex: Male

DRUGS (10)
  1. AVANDIA [Suspect]
     Indication: DRUG USE FOR UNKNOWN INDICATION
     Dosage: 2MG TWICE PER DAY
     Route: 048
     Dates: start: 20051109
  2. METFORMIN [Concomitant]
  3. ZETIA [Concomitant]
  4. DIGOXIN [Concomitant]
  5. LISINOPRIL [Concomitant]
  6. WARFARIN SODIUM [Concomitant]
  7. GLIPIZIDE [Concomitant]
  8. ISOSORBIDE DINITRATE [Concomitant]
  9. ZOCOR [Concomitant]
  10. METOPROLOL [Concomitant]

REACTIONS (1)
  - MEDICATION RESIDUE [None]
